FAERS Safety Report 5830611-8 (Version None)
Quarter: 2008Q3

REPORT INFORMATION
  Report Type: 
  Country: None (occurrence: None)
  Receive Date: 20080801
  Receipt Date: 20070815
  Transmission Date: 20090109
  Serious: No
  Sender: FDA-Public Use
  Company Number: US-BRISTOL-MYERS SQUIBB COMPANY-13879150

PATIENT
  Age: 85 Year
  Sex: Male
  Weight: 75 kg

DRUGS (9)
  1. COUMADIN [Suspect]
     Indication: HEART VALVE REPLACEMENT
     Route: 048
     Dates: start: 19970101, end: 20070612
  2. PROVIGIL [Suspect]
     Indication: DEMENTIA
     Route: 048
     Dates: start: 20070521
  3. SYNTHROID [Concomitant]
  4. EFFEXOR XR [Concomitant]
     Dates: start: 20040101
  5. SINEMET [Concomitant]
     Dates: start: 20040101
  6. EXELON [Concomitant]
     Dates: start: 20060101
  7. NAMENDA [Concomitant]
     Dates: start: 20070409
  8. SEROQUEL [Concomitant]
     Dates: start: 20070201
  9. LAMICTAL [Concomitant]
     Dates: start: 20070101, end: 20070605

REACTIONS (2)
  - DRUG INTERACTION [None]
  - INTERNATIONAL NORMALISED RATIO INCREASED [None]
